FAERS Safety Report 7301200-3 (Version None)
Quarter: 2010Q4

REPORT INFORMATION
  Report Type: 
  Country: None (occurrence: None)
  Receive Date: 20101229
  Receipt Date: 20100914
  Transmission Date: 20110411
  Serious: No
  Sender: FDA-Public Use
  Company Number: 1000016255

PATIENT
  Age: 68 Year
  Sex: Male

DRUGS (4)
  1. BYSTOLIC [Suspect]
     Indication: VENTRICULAR TACHYCARDIA
     Dosage: 5 MG (5 MG, 1 IN 1 D0, ORAL
     Route: 048
     Dates: start: 20080401, end: 20080701
  2. BYSTOLIC [Suspect]
     Indication: VENTRICULAR TACHYCARDIA
     Dosage: 2.5 MG (2.5 MG, 1 IN 1 D), ORAL
     Route: 048
     Dates: start: 20080701, end: 20080801
  3. LIPITOR [Concomitant]
  4. PROSCAR (FINASTERIDE) (FINASTERIDE) [Concomitant]

REACTIONS (6)
  - ASTHENIA [None]
  - BALANCE DISORDER [None]
  - DIZZINESS [None]
  - FATIGUE [None]
  - HEART RATE DECREASED [None]
  - HYPOTENSION [None]
